FAERS Safety Report 8502670-5 (Version None)
Quarter: 2012Q3

REPORT INFORMATION
  Report Type: 
  Country: None (occurrence: None)
  Receive Date: 20120702
  Receipt Date: 20120615
  Transmission Date: 20120928
  Serious: Yes (Hospitalization, Other)
  Sender: FDA-Public Use
  Company Number: 2012SGN00278

PATIENT
  Sex: Male

DRUGS (1)
  1. ADCETRIS [Suspect]
     Indication: PRODUCT USED FOR UNKNOWN INDICATION
     Dosage: INTRAVENOUS
     Route: 042
     Dates: start: 20120517, end: 20120517

REACTIONS (8)
  - ERYTHEMA [None]
  - NAUSEA [None]
  - DYSPNOEA [None]
  - INFUSION RELATED REACTION [None]
  - PNEUMONIA [None]
  - BLOOD PRESSURE DECREASED [None]
  - RASH [None]
  - URTICARIA [None]
